FAERS Safety Report 5408896-1 (Version None)
Quarter: 2007Q3

REPORT INFORMATION
  Report Type: 
  Country: None (occurrence: None)
  Receive Date: 20070713
  Receipt Date: 20070423
  Transmission Date: 20080115
  Serious: Yes (Other)
  Sender: FDA-Public Use
  Company Number: US-JNJFOC-20060702615

PATIENT
  Age: 50 Year
  Sex: Female
  Weight: 112.0385 kg

DRUGS (4)
  1. ORTHO EVRA [Suspect]
     Indication: UTERINE LEIOMYOMA
     Dosage: TRANSDERMAL
     Route: 062
     Dates: end: 20050801
  2. PRINZIDE [Concomitant]
  3. ZYRTEC [Concomitant]
  4. ALBUTEROL [Concomitant]

REACTIONS (3)
  - DEEP VEIN THROMBOSIS [None]
  - PARAESTHESIA [None]
  - PULMONARY EMBOLISM [None]
